FAERS Safety Report 6646296-7 (Version None)
Quarter: 2010Q1

REPORT INFORMATION
  Report Type: 
  Country: None (occurrence: None)
  Receive Date: 20100323
  Receipt Date: 20100312
  Transmission Date: 20100710
  Serious: Yes (Other)
  Sender: FDA-Public Use
  Company Number: SE-BAYER-201014796GPV

PATIENT
  Age: 63 Year
  Sex: Male
  Weight: 120 kg

DRUGS (5)
  1. SORAFENIB [Suspect]
     Indication: HEPATIC NEOPLASM MALIGNANT
     Dosage: TOTAL DAILY DOSE: 800 MG
     Route: 048
     Dates: start: 20100118, end: 20100128
  2. FUROSEMID [Concomitant]
     Indication: HYPERTENSION
     Route: 048
     Dates: start: 20050101
  3. METOPROLOL TARTRATE [Concomitant]
     Indication: HYPERTENSION
     Route: 048
     Dates: start: 20091117
  4. KANDESARTAN [Concomitant]
     Indication: HYPERTENSION
     Route: 048
     Dates: start: 20100126
  5. SPIRONOLACTONE [Concomitant]
     Indication: HYPERTENSION
     Route: 048
     Dates: start: 20100201

REACTIONS (4)
  - ANGIOEDEMA [None]
  - BLOOD PRESSURE INCREASED [None]
  - NAIL BED BLEEDING [None]
  - RASH [None]
